FAERS Safety Report 7611199-8 (Version None)
Quarter: 2011Q3

REPORT INFORMATION
  Report Type: 
  Country: None (occurrence: None)
  Receive Date: 20110707
  Receipt Date: 20110622
  Transmission Date: 20111222
  Serious: Yes (Life-Threatening)
  Sender: FDA-Public Use
  Company Number: 011008

PATIENT
  Age: 61 Year
  Sex: Female

DRUGS (7)
  1. ATIVAN [Concomitant]
  2. BUSULFAN [Suspect]
     Indication: STEM CELL TRANSPLANT
     Dosage: 41MG, DAILY DOSE, INTRAVENOUS, 204 MG, DAILY DOSE, INTRAVENOUS
     Route: 042
     Dates: start: 20100707, end: 20100710
  3. BUSULFAN [Suspect]
     Indication: STEM CELL TRANSPLANT
     Dosage: 41MG, DAILY DOSE, INTRAVENOUS, 204 MG, DAILY DOSE, INTRAVENOUS
     Route: 042
     Dates: start: 20100701, end: 20100701
  4. CYCLOPHOSPHAMIDE [Concomitant]
  5. TYLENOL USA (PARACETAMOL) [Concomitant]
  6. ETOPOSIDE [Concomitant]
  7. COMPAZINE (PROCLORPERAZINE EDISYLATE) [Concomitant]

REACTIONS (6)
  - INTRACRANIAL HYPOTENSION [None]
  - SUBDURAL HAEMORRHAGE [None]
  - BLOOD GLUCOSE INCREASED [None]
  - BRAIN HERNIATION [None]
  - THROMBOCYTOPENIA [None]
  - BRAIN MIDLINE SHIFT [None]
